FAERS Safety Report 19239205 (Version 1)
Quarter: 2021Q2

REPORT INFORMATION
  Report Type: Spontaneous
  Country: CN (occurrence: CN)
  Receive Date: 20210510
  Receipt Date: 20210510
  Transmission Date: 20210717
  Serious: Yes (Hospitalization, Other)
  Sender: FDA-Public Use
  Company Number: CN-JNJFOC-20210509080

PATIENT
  Age: 79 Year
  Sex: Male

DRUGS (1)
  1. RIVAROXABAN [Suspect]
     Active Substance: RIVAROXABAN
     Indication: ANTICOAGULANT THERAPY
     Dosage: 15 MG, QD
     Route: 048
     Dates: start: 20191017, end: 20210423

REACTIONS (9)
  - Gastrointestinal haemorrhage [Recovering/Resolving]
  - Nausea [Recovering/Resolving]
  - Melaena [Recovering/Resolving]
  - Loss of consciousness [Unknown]
  - Haematochezia [Recovering/Resolving]
  - Shock haemorrhagic [Recovering/Resolving]
  - Haematemesis [Recovering/Resolving]
  - Asthenia [Recovering/Resolving]
  - Faeces soft [Recovering/Resolving]

NARRATIVE: CASE EVENT DATE: 20210420
